FAERS Safety Report 7487742-9 (Version None)
Quarter: 2011Q2

REPORT INFORMATION
  Report Type: 
  Country: None (occurrence: None)
  Receive Date: 20110518
  Receipt Date: 20110509
  Transmission Date: 20111010
  Serious: Yes (Hospitalization, Other)
  Sender: FDA-Public Use
  Company Number: PHFR2010IE03374

PATIENT
  Sex: Male

DRUGS (2)
  1. CLOZARIL [Suspect]
     Indication: SCHIZOPHRENIA
     Dosage: UNK MG, UNK
     Route: 048
     Dates: start: 20070620, end: 20100801
  2. CLOZARIL [Suspect]
     Dosage: UNK MG, UNK
     Route: 048
     Dates: start: 20101201

REACTIONS (4)
  - LUNG INFECTION [None]
  - MENTAL IMPAIRMENT [None]
  - PERICARDITIS [None]
  - PERICARDIAL EFFUSION [None]
